FAERS Safety Report 11927764 (Version 3)
Quarter: 2016Q1

REPORT INFORMATION
  Report Type: Spontaneous
  Country: US (occurrence: US)
  Receive Date: 20160119
  Receipt Date: 20160128
  Transmission Date: 20160526
  Serious: Yes (Other)
  Sender: FDA-Public Use
  Company Number: US-HORIZON-PEN-0005-2016

PATIENT
  Age: 61 Year
  Sex: Female

DRUGS (1)
  1. PENNSAID [Suspect]
     Active Substance: DICLOFENAC SODIUM
     Indication: OSTEOARTHRITIS
     Dosage: TWICE DAILY, DECREASED TO ONCE DAILY
     Dates: start: 20151229, end: 20160108

REACTIONS (4)
  - Intentional product use issue [Unknown]
  - Throat tightness [Recovered/Resolved]
  - Application site rash [Not Recovered/Not Resolved]
  - Swollen tongue [Recovered/Resolved]

NARRATIVE: CASE EVENT DATE: 20160108
